FAERS Safety Report 4481449-8 (Version None)
Quarter: 2004Q3

REPORT INFORMATION
  Report Type: 
  Country: None (occurrence: None)
  Receive Date: 20040923
  Receipt Date: 20040806
  Transmission Date: 20050211
  Serious: No
  Sender: FDA-Public Use
  Company Number: USA040568699

PATIENT
  Age: 67 Year
  Sex: Female
  Weight: 46 kg

DRUGS (10)
  1. FORTEO [Suspect]
     Indication: OSTEOPOROSIS
     Dosage: 20 UG DAY
     Dates: start: 20031017
  2. FOSAMAX [Concomitant]
  3. CALCIUM [Concomitant]
  4. MIACALCIN [Concomitant]
  5. ULTRAM [Concomitant]
  6. MOBIC [Concomitant]
  7. PREMARIN [Concomitant]
  8. BC POWDER [Concomitant]
  9. CLONIDINE [Concomitant]
  10. CELEBREX [Concomitant]

REACTIONS (2)
  - HYPERSOMNIA [None]
  - INJECTION SITE BURNING [None]
